FAERS Safety Report 7583760-0 (Version None)
Quarter: 2011Q2

REPORT INFORMATION
  Report Type: 
  Country: None (occurrence: None)
  Receive Date: 20110630
  Receipt Date: 20110621
  Transmission Date: 20111010
  Serious: Yes (Hospitalization)
  Sender: FDA-Public Use
  Company Number: US-ASTRAZENECA-2011SE38100

PATIENT
  Age: 40 Year
  Sex: Female

DRUGS (36)
  1. TRIAMCINOLONE ACETONIDE [Concomitant]
  2. CEROVITE VITAMIN AND MINERAL SUPPLEMENT [Concomitant]
  3. METHOTREXATE [Concomitant]
  4. BUTALBITAL [Concomitant]
     Indication: MIGRAINE
  5. SINGULAIR [Concomitant]
  6. OYSCO [Concomitant]
  7. HUMIRA [Concomitant]
     Route: 058
  8. PREDNISONE [Concomitant]
  9. CYMBALTA [Concomitant]
  10. HYDROXYZINE [Concomitant]
     Dosage: 25 MG M6, 1 OR 2 TAB AT NIGHT 2XDAY
  11. CLOTRIMAZOLE ANTIFUNGAL [Concomitant]
  12. ORAJEL [Concomitant]
  13. ALBUTEROL SULFATE AUTOHALER [Concomitant]
     Dosage: 0.83 ML SOL 375 ML USE 4 TIMES A DAY VIA NEBULIZER
  14. PREPARATION H [Concomitant]
  15. CHLORASEPTIC [Concomitant]
     Indication: HIATUS HERNIA
  16. CETIRIZINE HCL [Concomitant]
  17. HYDROCODONE [Concomitant]
     Indication: PAIN
     Dosage: 7.5 750 TAB EVERY 4 TO 6 H AS NEEDED
  18. LISINOPRIL [Suspect]
     Indication: COUGH
     Route: 048
  19. VOLTAREN [Concomitant]
     Indication: ARTHRALGIA
     Route: 061
  20. VOLTAREN [Concomitant]
     Indication: SWELLING
     Route: 061
  21. CHLORASEPTIC [Concomitant]
     Indication: OROPHARYNGEAL PAIN
  22. MUCINEX [Concomitant]
     Indication: COUGH
  23. POLYETHYLENE GLICOL [Concomitant]
     Indication: CONSTIPATION
     Dosage: 3.350 NF POW BRES MIX 17 G GM CUP IN 4 TO 8 OZ OF WATER AND DRINK DAILY
  24. METAMUCIL-2 [Concomitant]
     Dosage: 5 8.6 % MIX 1 TABLE SPOON IN 8 02 OF LIQUID AS DIRECTED AND DRINK DAILY
  25. CLOTRIMAZOLE [Concomitant]
  26. MECLIZINE HCL [Concomitant]
     Indication: DIZZINESS
     Route: 048
  27. TIZANIDINE HCL [Concomitant]
  28. NEXIUM [Suspect]
     Route: 048
  29. CRESTOR [Suspect]
     Route: 048
  30. NYSTATIN [Concomitant]
  31. AMMONIUM LACTATE [Concomitant]
     Indication: PAIN
  32. MENEST [Concomitant]
  33. ALPRAZOLAM [Concomitant]
  34. HYDROXYZINE SODIUM [Concomitant]
  35. ADVAIR DISKUS 100/50 [Concomitant]
     Dosage: 250/50 MCG 2XDAY
  36. PROAIR HFA [Concomitant]
     Dosage: 108 MCG/AC INHALE TWO PUFFS 4 TIMES A DAY

REACTIONS (17)
  - PAIN [None]
  - COLONOSCOPY [None]
  - OROPHARYNGEAL PAIN [None]
  - TOOTH INFECTION [None]
  - ARTHRALGIA [None]
  - SUICIDE ATTEMPT [None]
  - COUGH [None]
  - JOINT SWELLING [None]
  - HIATUS HERNIA [None]
  - FUNGAL INFECTION [None]
  - DIZZINESS [None]
  - CONSTIPATION [None]
  - HAEMORRHOIDS [None]
  - ABDOMINAL DISCOMFORT [None]
  - POLYP [None]
  - MIGRAINE [None]
  - GALLBLADDER DISORDER [None]
